FAERS Safety Report 6211284-1 (Version None)
Quarter: 2009Q2

REPORT INFORMATION
  Report Type: 
  Country: None (occurrence: None)
  Receive Date: 20090602
  Receipt Date: 20090401
  Transmission Date: 20091009
  Serious: Yes (Congenital Anomaly, Other)
  Sender: FDA-Public Use
  Company Number: PHHY2009NO12744

PATIENT
  Sex: Female

DRUGS (21)
  1. LESCOL [Suspect]
     Indication: HYPERCHOLESTEROLAEMIA
     Dosage: 20 MG PER DAY
     Dates: start: 20040123, end: 20050204
  2. LESCOL [Suspect]
     Dosage: 40 MG/DAY
     Dates: start: 20040614
  3. LESCOL [Suspect]
     Dosage: 20 MG/DAY
     Dates: start: 20040803, end: 20050204
  4. LIPITOR [Suspect]
     Indication: HYPERCHOLESTEROLAEMIA
     Dosage: 40 MG VESP
     Dates: start: 20050204, end: 20050711
  5. CHOLESTEROL LOWERING DRUGS [Suspect]
     Dosage: UNK
     Dates: start: 20040101
  6. ZANIDIP [Concomitant]
     Dosage: UNK
     Dates: start: 20040102, end: 20040416
  7. MICARDIS [Concomitant]
     Dosage: 40 MG
     Dates: start: 20040102
  8. MICARDIS [Concomitant]
     Dosage: 80 MG
     Dates: start: 20040823, end: 20041011
  9. CLONIDINE HCL [Concomitant]
     Dosage: 25 UG X 2
     Dates: start: 20040319, end: 20040416
  10. KREDEX [Concomitant]
     Dosage: 12.5 MG
  11. KREDEX [Concomitant]
     Dosage: 6.23 MG
     Dates: start: 20040803
  12. KLIOGEST [Concomitant]
     Dosage: 1 TAB/DAY
  13. OPATANOL [Concomitant]
  14. NASACORT [Concomitant]
     Route: 045
  15. LIVOSTIN [Concomitant]
     Route: 045
  16. DIOVAN COMP [Concomitant]
     Dosage: 1 TAB/DAY
     Dates: start: 20041011, end: 20050110
  17. DIOVAN COMP FORTE [Concomitant]
     Dosage: 1 TAB/DAY
     Dates: start: 20050118, end: 20050204
  18. COAPROVEL [Concomitant]
     Dosage: 300 MG
     Dates: start: 20050204
  19. COAPROVEL [Concomitant]
     Dosage: 150 MG
     Dates: start: 20050307, end: 20050426
  20. MAGNEMIN [Concomitant]
     Dosage: 75 MG
     Dates: start: 20041108
  21. COZAAR [Concomitant]
     Dosage: 50 MG
     Dates: start: 20050425, end: 20050518

REACTIONS (29)
  - AREFLEXIA [None]
  - ARTHRALGIA [None]
  - BLOOD PRESSURE INCREASED [None]
  - CARDIAC DISORDER [None]
  - CEREBROVASCULAR DISORDER [None]
  - FATIGUE [None]
  - FLUSHING [None]
  - GAIT DISTURBANCE [None]
  - GAMMOPATHY [None]
  - HEADACHE [None]
  - HYPERHIDROSIS [None]
  - HYPERTONIA [None]
  - HYPOAESTHESIA [None]
  - MITOCHONDRIAL CYTOPATHY [None]
  - MUSCULAR WEAKNESS [None]
  - MUSCULOSKELETAL STIFFNESS [None]
  - MYALGIA [None]
  - MYOPATHY [None]
  - PALLANAESTHESIA [None]
  - PARAESTHESIA [None]
  - PERIPHERAL COLDNESS [None]
  - POLYNEUROPATHY [None]
  - PREMATURE MENOPAUSE [None]
  - QUALITY OF LIFE DECREASED [None]
  - RAYNAUD'S PHENOMENON [None]
  - RESTLESS LEGS SYNDROME [None]
  - SCLERODERMA [None]
  - SENSATION OF HEAVINESS [None]
  - SENSORY LOSS [None]
